FAERS Safety Report 11298434 (Version 1)
Quarter: 2015Q3

REPORT INFORMATION
  Report Type: Spontaneous
  Country: US (occurrence: US)
  Receive Date: 20150722
  Receipt Date: 20150722
  Transmission Date: 20151125
  Serious: Yes (Life-Threatening)
  Sender: FDA-Public Use
  Company Number: US-ELI_LILLY_AND_COMPANY-US201110001371

PATIENT
  Age: 76 Year
  Sex: Male
  Weight: 73.47 kg

DRUGS (16)
  1. EFFIENT [Suspect]
     Active Substance: PRASUGREL HYDROCHLORIDE
     Indication: STENT PLACEMENT
     Dosage: 10 MG, QD
     Route: 048
     Dates: start: 20101206, end: 20110113
  2. FLAXSEED [Concomitant]
     Active Substance: FLAX SEED
  3. KCL [Concomitant]
     Active Substance: POTASSIUM CHLORIDE
     Dosage: 10 MEQ, QD
     Route: 048
  4. BYSTOLIC [Concomitant]
     Active Substance: NEBIVOLOL HYDROCHLORIDE
     Dosage: 5 MG, QD
     Route: 048
  5. METOPROLOL [Concomitant]
     Active Substance: METOPROLOL
  6. SPIRONOLACTON [Concomitant]
     Active Substance: SPIRONOLACTONE
  7. ISOSORBIDE. [Concomitant]
     Active Substance: ISOSORBIDE
     Dosage: 30 MG, QD
     Route: 048
  8. ASMANEX [Concomitant]
     Active Substance: MOMETASONE FUROATE
     Dosage: 220 MG, BID
     Route: 055
  9. ASPIRIN. [Concomitant]
     Active Substance: ASPIRIN
     Dosage: 81 MG, QD
  10. ALBUTEROL. [Concomitant]
     Active Substance: ALBUTEROL
     Dosage: 0.083%, QID PRN
  11. CORTICOSTEROIDS [Concomitant]
     Active Substance: CORTICOSTEROID NOS
     Dosage: UNK, UNKNOWN
     Route: 065
  12. COREG [Concomitant]
     Active Substance: CARVEDILOL
  13. FISH OIL [Concomitant]
     Active Substance: FISH OIL
  14. SIMVASTATIN. [Concomitant]
     Active Substance: SIMVASTATIN
     Dosage: 40 MG, QD
     Route: 048
  15. RESTORIL [Concomitant]
     Active Substance: TEMAZEPAM
     Dosage: 15 MG, QD PRN
     Route: 048
  16. IPRATROPIUM [Concomitant]
     Active Substance: IPRATROPIUM
     Dosage: UNK, QID PRN
     Route: 065

REACTIONS (5)
  - Headache [Unknown]
  - Haemoptysis [Recovered/Resolved]
  - Epistaxis [Recovered/Resolved]
  - Haematochezia [Recovered/Resolved]
  - Glomerular filtration rate decreased [Unknown]

NARRATIVE: CASE EVENT DATE: 20101230
